FAERS Safety Report 13879462 (Version 1)
Quarter: 2017Q3

REPORT INFORMATION
  Report Type: Spontaneous
  Country: US (occurrence: US)
  Receive Date: 20170817
  Receipt Date: 20170817
  Transmission Date: 20171127
  Serious: No
  Sender: FDA-Public Use
  Company Number: US-ENDO PHARMACEUTICALS INC-2017-000596

PATIENT
  Sex: Female
  Weight: 110.2 kg

DRUGS (1)
  1. SUMAVEL DOSEPRO [Suspect]
     Active Substance: SUMATRIPTAN SUCCINATE
     Indication: MIGRAINE
     Dosage: 6 MG, INJECT AT ONSET OF MIGRAINE INTO THIGH, ABDOMEN, HIP
     Route: 065

REACTIONS (4)
  - Injection site erythema [Recovered/Resolved]
  - Drug administered at inappropriate site [Unknown]
  - Injection site pain [Recovered/Resolved]
  - Injection site bruising [Recovered/Resolved]
